FAERS Safety Report 10373895 (Version 4)
Quarter: 2014Q4

REPORT INFORMATION
  Report Type: Report from Study
  Country: DE (occurrence: DE)
  Receive Date: 20140809
  Receipt Date: 20141204
  Transmission Date: 20150528
  Serious: Yes (Hospitalization)
  Sender: FDA-Public Use
  Company Number: PHHY2014DE097643

PATIENT
  Age: 47 Year
  Sex: Male

DRUGS (3)
  1. FAMPYRA [Concomitant]
     Active Substance: DALFAMPRIDINE
     Indication: PRODUCT USED FOR UNKNOWN INDICATION
     Dosage: UNK UKN, UNK
     Route: 065
  2. GILENYA [Suspect]
     Active Substance: FINGOLIMOD HYDROCHLORIDE
     Indication: MULTIPLE SCLEROSIS
     Dosage: 0.5 MG, DAILY
     Route: 048
     Dates: start: 20110903, end: 20140729
  3. GILENYA [Suspect]
     Active Substance: FINGOLIMOD HYDROCHLORIDE
     Dosage: 0.5 MG, DAILY
     Route: 048
     Dates: start: 20140806, end: 201410

REACTIONS (24)
  - Lung infiltration [Recovering/Resolving]
  - Blood potassium increased [Unknown]
  - Lung hyperinflation [Unknown]
  - Pneumonia [Recovering/Resolving]
  - Obstructive airways disorder [Unknown]
  - Intervertebral disc protrusion [Unknown]
  - Pyrexia [Recovering/Resolving]
  - Prolonged expiration [Unknown]
  - Inflammatory marker increased [Unknown]
  - Gamma-glutamyltransferase increased [Unknown]
  - Cough [Unknown]
  - Acquired diaphragmatic eventration [Recovering/Resolving]
  - Fatigue [Unknown]
  - Lymphopenia [Unknown]
  - Decreased appetite [Unknown]
  - Asthma [Unknown]
  - Blood pressure decreased [Unknown]
  - House dust allergy [Unknown]
  - Oxygen saturation abnormal [Unknown]
  - Breath sounds abnormal [Unknown]
  - Conjunctivitis [Unknown]
  - Dyspnoea exertional [Unknown]
  - Bronchitis chronic [Recovering/Resolving]
  - Immunosuppression [Unknown]

NARRATIVE: CASE EVENT DATE: 201407
